FAERS Safety Report 16329276 (Version 2)
Quarter: 2024Q3

REPORT INFORMATION
  Report Type: Spontaneous
  Country: US (occurrence: US)
  Receive Date: 20190520
  Receipt Date: 20240729
  Transmission Date: 20241017
  Serious: Yes (Hospitalization, Other)
  Sender: MERCK
  Company Number: US-HBP-2015US011032

PATIENT
  Age: 56 Year
  Sex: Female
  Weight: 80.5 kg

DRUGS (5)
  1. EMEND [Interacting]
     Active Substance: APREPITANT
     Indication: Prophylaxis of nausea and vomiting
     Dosage: 150 MG, QD
     Route: 042
     Dates: start: 20150130, end: 20150130
  2. ALOXI [Suspect]
     Active Substance: PALONOSETRON HYDROCHLORIDE
     Indication: Prophylaxis of nausea and vomiting
     Dosage: 0.25 MG, ONCE
     Route: 042
     Dates: start: 20150130, end: 20150130
  3. MAGNESIUM [Suspect]
     Active Substance: MAGNESIUM
     Indication: Blood magnesium decreased
     Route: 042
     Dates: start: 20150130
  4. DECADRON [Concomitant]
     Active Substance: DEXAMETHASONE
     Indication: Prophylaxis of nausea and vomiting
     Dosage: 10 MG, QD
     Route: 042
     Dates: start: 20150130, end: 20150130
  5. ATIVAN [Concomitant]
     Active Substance: LORAZEPAM
     Indication: Prophylaxis of nausea and vomiting
     Dosage: 0.5 MG, QD
     Route: 042
     Dates: start: 20150130, end: 20150130

REACTIONS (21)
  - Hypotension [Recovered/Resolved]
  - Loss of consciousness [Recovered/Resolved]
  - Urinary incontinence [Recovered/Resolved]
  - Tachycardia [Recovered/Resolved]
  - Diarrhoea [Recovered/Resolved]
  - Blood calcium decreased [Unknown]
  - Blood creatinine increased [Unknown]
  - Blood glucose increased [Unknown]
  - Blood magnesium decreased [Unknown]
  - Blood pressure decreased [Unknown]
  - Blood urea increased [Unknown]
  - Chest pain [Unknown]
  - Drug interaction [Unknown]
  - Dyspepsia [Unknown]
  - Electrocardiogram ST segment elevation [Unknown]
  - Flushing [Unknown]
  - Heart rate increased [Unknown]
  - Lethargy [Unknown]
  - Platelet count decreased [Unknown]
  - Pulse abnormal [Unknown]
  - Unresponsive to stimuli [Unknown]

NARRATIVE: CASE EVENT DATE: 20150130
